FAERS Safety Report 25384324 (Version 1)
Quarter: 2025Q2

REPORT INFORMATION
  Report Type: Spontaneous
  Country: LB (occurrence: LB)
  Receive Date: 20250602
  Receipt Date: 20250602
  Transmission Date: 20250716
  Serious: Yes (Life-Threatening, Hospitalization, Other)
  Sender: OXFORD PHARMACEUTICALS, LLC
  Company Number: LB-Oxford Pharmaceuticals, LLC-2177901

PATIENT
  Age: 23 Year
  Sex: Female

DRUGS (2)
  1. BACLOFEN [Suspect]
     Active Substance: BACLOFEN
     Indication: Cerebral palsy
  2. VALPROATE [Suspect]
     Active Substance: VALPROIC ACID

REACTIONS (2)
  - Dieulafoy^s vascular malformation [Recovered/Resolved]
  - Shock haemorrhagic [Recovered/Resolved]
